FAERS Safety Report 20942741 (Version 4)
Quarter: 2022Q3

REPORT INFORMATION
  Report Type: Report from Study
  Country: US (occurrence: US)
  Receive Date: 20220610
  Receipt Date: 20220629
  Transmission Date: 20221027
  Serious: Yes (Other)
  Sender: FDA-Public Use
  Company Number: US-NOVARTISTESTPH-NVSC2022US132145

PATIENT
  Age: 65 Year
  Sex: Female
  Weight: 97.52 kg

DRUGS (3)
  1. MAYZENT [Suspect]
     Active Substance: SIPONIMOD
     Indication: Product used for unknown indication
     Dosage: UNK
     Route: 065
  2. MAYZENT [Suspect]
     Active Substance: SIPONIMOD
     Dosage: 0.25 MG/KG
     Route: 048
     Dates: start: 20220614, end: 20220616
  3. MAYZENT [Suspect]
     Active Substance: SIPONIMOD
     Dosage: 2 MG
     Route: 065

REACTIONS (11)
  - Seizure [Not Recovered/Not Resolved]
  - Muscle contracture [Not Recovered/Not Resolved]
  - Insomnia [Unknown]
  - Gait inability [Unknown]
  - Decreased appetite [Unknown]
  - Coordination abnormal [Unknown]
  - Visual impairment [Unknown]
  - Product blister packaging issue [Unknown]
  - Drug titration error [Unknown]
  - Product dose omission issue [Unknown]
  - Drug ineffective [Unknown]

NARRATIVE: CASE EVENT DATE: 20220624
